FAERS Safety Report 9559050 (Version 1)
Quarter: 2013Q3

REPORT INFORMATION
  Report Type: Spontaneous
  Country: US (occurrence: US)
  Receive Date: 20130927
  Receipt Date: 20130927
  Transmission Date: 20140515
  Serious: No
  Sender: FDA-Public Use
  Company Number: US-BIOGENIDEC-2013BI091698

PATIENT
  Sex: Male

DRUGS (1)
  1. TYSABRI [Suspect]
     Indication: MULTIPLE SCLEROSIS

REACTIONS (3)
  - Leukopenia [Recovered/Resolved]
  - Cognitive disorder [Unknown]
  - Memory impairment [Unknown]
